FAERS Safety Report 4648584-2 (Version None)
Quarter: 2005Q2

REPORT INFORMATION
  Report Type: 
  Country: None (occurrence: None)
  Receive Date: 20050427
  Receipt Date: 20050417
  Transmission Date: 20051028
  Serious: Yes (Life-Threatening, Hospitalization)
  Sender: FDA-Public Use
  Company Number: 2005062096

PATIENT
  Age: 34 Year
  Sex: 0

DRUGS (4)
  1. NORVASC [Suspect]
     Indication: ILL-DEFINED DISORDER
     Dosage: 55 MG, ORAL
     Route: 048
  2. CADENALIN (DOXAZOSIN) [Suspect]
     Indication: ILL-DEFINED DISORDER
     Dosage: 22 MG , ORAL
     Route: 048
  3. ALDACTONE [Suspect]
     Indication: ILL-DEFINED DISORDER
     Dosage: 275 MG, ORAL
     Route: 048
  4. FUROSEMIDE [Suspect]
     Indication: ILL-DEFINED DISORDER
     Dosage: 11 TABLETS, ORAL
     Route: 048

REACTIONS (2)
  - HOSPITALISATION [None]
  - MULTIPLE DRUG OVERDOSE [None]
